FAERS Safety Report 8414889-2 (Version None)
Quarter: 2012Q2

REPORT INFORMATION
  Report Type: 
  Country: None (occurrence: None)
  Receive Date: 20120601
  Receipt Date: 20120601
  Transmission Date: 20120825
  Serious: No
  Sender: FDA-Public Use
  Company Number: None

PATIENT
  Age: 51 Year
  Sex: Male
  Weight: 85.5 kg

DRUGS (1)
  1. BOCEPREVIR [Suspect]
     Dosage: 800 MG PO
     Route: 048
     Dates: start: 20120104, end: 20120301

REACTIONS (4)
  - NAUSEA [None]
  - FATIGUE [None]
  - VOMITING [None]
  - DYSGEUSIA [None]
